FAERS Safety Report 6623519-1 (Version None)
Quarter: 2010Q1

REPORT INFORMATION
  Report Type: 
  Country: None (occurrence: None)
  Receive Date: 20100305
  Receipt Date: 20100225
  Transmission Date: 20100710
  Serious: Yes (Other)
  Sender: FDA-Public Use
  Company Number: 2010SP012301

PATIENT
  Sex: Female

DRUGS (2)
  1. ORGARAN [Suspect]
     Indication: ANTICOAGULANT THERAPY
     Dosage: ;BID;UNK
     Dates: start: 20081201
  2. FONDAPARINUX SODIUM [Concomitant]

REACTIONS (1)
  - CELLULITIS [None]
